FAERS Safety Report 9258077 (Version 1)
Quarter: 2013Q2

REPORT INFORMATION
  Report Type: Report from Study
  Country: DK (occurrence: DE)
  Receive Date: 20130426
  Receipt Date: 20130426
  Transmission Date: 20140414
  Serious: Yes (Hospitalization)
  Sender: FDA-Public Use
  Company Number: DE-FRI-1000044582

PATIENT
  Sex: Male

DRUGS (8)
  1. CITALOPRAM [Suspect]
     Dosage: 10 MG
     Route: 048
     Dates: start: 20130117, end: 20130124
  2. CITALOPRAM [Suspect]
     Dosage: 20 MG
     Route: 048
     Dates: start: 20130125, end: 20130131
  3. CITALOPRAM [Suspect]
     Dosage: 30 MG
     Route: 048
     Dates: start: 20130201, end: 20130211
  4. CITALOPRAM [Suspect]
     Dosage: 40 MG
     Route: 048
     Dates: start: 20130212, end: 20130218
  5. CITALOPRAM [Suspect]
     Dosage: 30 MG
     Route: 048
     Dates: start: 20130219
  6. SEROQUEL [Suspect]
     Indication: SLEEP DISORDER
     Route: 048
     Dates: end: 20130115
  7. SEROQUEL [Suspect]
     Dosage: 75 MG IN THE EVENING
     Route: 048
     Dates: start: 20130116
  8. L-THYROXIN [Concomitant]
     Dosage: 125 MICROGRAMS
     Route: 048

REACTIONS (2)
  - Balance disorder [Recovered/Resolved]
  - Dizziness [Recovered/Resolved]
